FAERS Safety Report 18215092 (Version 1)
Quarter: 2020Q3

REPORT INFORMATION
  Report Type: Spontaneous
  Country: SE (occurrence: SE)
  Receive Date: 20200831
  Receipt Date: 20200831
  Transmission Date: 20201103
  Serious: Yes (Other)
  Sender: FDA-Public Use
  Company Number: SE-PFIZER INC-2020276333

PATIENT
  Age: 20 Year
  Sex: Female

DRUGS (1)
  1. VENLAFAXINE HCL [Suspect]
     Active Substance: VENLAFAXINE HYDROCHLORIDE
     Dosage: 1 DF, 1X/DAY

REACTIONS (6)
  - Hyperhidrosis [Unknown]
  - Dry mouth [Unknown]
  - Contusion [Unknown]
  - Hypertonic bladder [Unknown]
  - Dyskinesia [Unknown]
  - Alopecia [Unknown]

NARRATIVE: CASE EVENT DATE: 2020
